FAERS Safety Report 13017340 (Version 1)
Quarter: 2016Q4

REPORT INFORMATION
  Report Type: Spontaneous
  Country: US (occurrence: US)
  Receive Date: 20161209
  Receipt Date: 20161209
  Transmission Date: 20170207
  Serious: No
  Sender: FDA-Public Use
  Company Number: None

PATIENT
  Age: 62 Year
  Sex: Female

DRUGS (1)
  1. ENBREL [Suspect]
     Active Substance: ETANERCEPT
     Indication: MALAISE
     Route: 058
     Dates: start: 20160501

REACTIONS (5)
  - Herpes zoster [None]
  - Alopecia [None]
  - Rash [None]
  - Scar [None]
  - Drug ineffective [None]

NARRATIVE: CASE EVENT DATE: 20161101
